FAERS Safety Report 6375560-4 (Version None)
Quarter: 2009Q3

REPORT INFORMATION
  Report Type: 
  Country: None (occurrence: None)
  Receive Date: 20090917
  Receipt Date: 20090917
  Transmission Date: 20100115
  Serious: Yes (Other)
  Sender: FDA-Public Use
  Company Number: None

PATIENT
  Age: 58 Year
  Sex: Female
  Weight: 69.8539 kg

DRUGS (1)
  1. ENBREL [Suspect]
     Indication: RHEUMATOID ARTHRITIS
     Dosage: 25MG INJECTION 2X PER WEEK SQ DOSAGE VARIED
     Route: 058
     Dates: start: 20050331, end: 20090916

REACTIONS (6)
  - ARTHRITIS [None]
  - BACK PAIN [None]
  - DISEASE PROGRESSION [None]
  - FATIGUE [None]
  - MUSCULAR WEAKNESS [None]
  - PAIN [None]
